FAERS Safety Report 5242220-2 (Version None)
Quarter: 2007Q1

REPORT INFORMATION
  Report Type: 
  Country: None (occurrence: None)
  Receive Date: 20070221
  Receipt Date: 20070212
  Transmission Date: 20070707
  Serious: Yes (Death, Other)
  Sender: FDA-Public Use
  Company Number: FR-RB-005294-07

PATIENT

DRUGS (1)
  1. SUBUTEX [Suspect]
     Indication: DRUG USE FOR UNKNOWN INDICATION
     Dosage: DOSAGE UNKNOWN
     Route: 064

REACTIONS (3)
  - ABORTION INDUCED [None]
  - BRAIN MALFORMATION [None]
  - TRANSMISSION OF DRUG VIA SEMEN [None]
